FAERS Safety Report 23178355 (Version 1)
Quarter: 2023Q4

REPORT INFORMATION
  Report Type: Report from Study
  Country: EG (occurrence: EG)
  Receive Date: 20231113
  Receipt Date: 20231113
  Transmission Date: 20240109
  Serious: Yes (Other)
  Sender: FDA-Public Use
  Company Number: EG-002147023-NVSC2023EG239134

PATIENT
  Sex: Female

DRUGS (2)
  1. GILENYA [Suspect]
     Active Substance: FINGOLIMOD HYDROCHLORIDE
     Indication: Multiple sclerosis
     Dosage: 1 DOSAGE FORM (CAPSULE), QD
     Route: 048
  2. COLCHICINE [Concomitant]
     Active Substance: COLCHICINE
     Indication: Brucellosis
     Dosage: 1 DOSAGE FORM (TABLET), QD - FROM ALMOST 10 YEARS
     Route: 065

REACTIONS (2)
  - Limb discomfort [Not Recovered/Not Resolved]
  - Product dispensing issue [Unknown]
